FAERS Safety Report 5276181-7 (Version None)
Quarter: 2007Q1

REPORT INFORMATION
  Report Type: 
  Country: None (occurrence: None)
  Receive Date: 20070326
  Receipt Date: 20070319
  Transmission Date: 20070707
  Serious: Yes (Hospitalization)
  Sender: FDA-Public Use
  Company Number: IL-SANOFI-SYNTHELABO-F01200700220

PATIENT
  Sex: Male
  Weight: 84 kg

DRUGS (7)
  1. GASTRO [Concomitant]
     Dosage: 20 MG BY MOUTH DAILY
     Route: 048
  2. SIMVACOR [Concomitant]
     Dosage: 20 MG DAILY BY MOUTH
     Route: 048
  3. ENALADEX [Concomitant]
     Dosage: 20 MG DAILY BY MOUTH
     Route: 048
     Dates: end: 20070225
  4. RECITAL [Concomitant]
     Dosage: 10 MG BY MOUTH
     Route: 048
     Dates: start: 20070225
  5. LEUPROLIDE ACETATE [Suspect]
     Indication: PROSTATE CANCER
     Route: 058
     Dates: start: 20070115, end: 20070115
  6. NORMITEN [Concomitant]
     Dosage: 125 MG BY MOUTH
     Route: 048
     Dates: start: 20070225
  7. TAXOTERE [Suspect]
     Indication: PROSTATE CANCER
     Route: 042
     Dates: start: 20070207, end: 20070207

REACTIONS (3)
  - DIARRHOEA [None]
  - FEBRILE NEUTROPENIA [None]
  - PYREXIA [None]
